FAERS Safety Report 21527598 (Version 2)
Quarter: 2022Q4

REPORT INFORMATION
  Report Type: Spontaneous
  Country: US (occurrence: US)
  Receive Date: 20221031
  Receipt Date: 20221118
  Transmission Date: 20230113
  Serious: No
  Sender: FDA-Public Use
  Company Number: US-MYLANLABS-2022M1117280

PATIENT

DRUGS (1)
  1. WIXELA INHUB [Suspect]
     Active Substance: FLUTICASONE PROPIONATE\SALMETEROL XINAFOATE
     Indication: Product used for unknown indication
     Dosage: 250/50 MICROGRAM
     Route: 055
     Dates: end: 20220921

REACTIONS (11)
  - Condition aggravated [Recovered/Resolved]
  - Walking disability [Recovered/Resolved]
  - Urticaria [Recovered/Resolved]
  - Oropharyngeal pain [Unknown]
  - Chest discomfort [Unknown]
  - Dyspnoea [Recovering/Resolving]
  - Headache [Unknown]
  - Asthma [Recovered/Resolved]
  - Cough [Recovering/Resolving]
  - Pruritus [Recovered/Resolved]
  - Fatigue [Recovered/Resolved]
